FAERS Safety Report 5841934-0 (Version None)
Quarter: 2008Q3

REPORT INFORMATION
  Report Type: 
  Country: None (occurrence: None)
  Receive Date: 20080812
  Receipt Date: 20050210
  Transmission Date: 20090109
  Serious: Yes (Congenital Anomaly)
  Sender: FDA-Public Use
  Company Number: US-MERCK-0403USA00236B1

PATIENT
  Age: 0 Day
  Sex: Male
  Weight: 2 kg

DRUGS (7)
  1. SINGULAIR [Suspect]
     Indication: ASTHMA
     Route: 064
     Dates: start: 20010101, end: 20031114
  2. PREDNISONE [Concomitant]
     Route: 064
  3. ADVAIR DISKUS 100/50 [Concomitant]
     Route: 064
  4. ZYRTEC [Concomitant]
     Route: 064
  5. PEPCID [Concomitant]
     Route: 064
  6. NEXIUM [Concomitant]
     Route: 064
  7. MAXALT [Suspect]
     Route: 064
     Dates: end: 20031114

REACTIONS (1)
  - HYPOSPADIAS [None]
